FAERS Safety Report 5293289-0 (Version None)
Quarter: 2007Q2

REPORT INFORMATION
  Report Type: 
  Country: None (occurrence: None)
  Receive Date: 20070411
  Receipt Date: 20070405
  Transmission Date: 20071010
  Serious: Yes (Life-Threatening, Hospitalization, Other)
  Sender: FDA-Public Use
  Company Number: 2007SE01915

PATIENT
  Age: 23994 Day
  Sex: Female

DRUGS (4)
  1. FASLODEX [Suspect]
     Indication: BREAST CANCER
     Route: 030
     Dates: start: 20070216
  2. DIKLOFENAK [Concomitant]
     Indication: ABDOMINAL PAIN
     Route: 054
     Dates: start: 20070131
  3. POLTRAM [Concomitant]
     Indication: ABDOMINAL PAIN
     Route: 048
     Dates: start: 20070131
  4. TRAMADOL HCL [Concomitant]
     Indication: ABDOMINAL PAIN
     Route: 054
     Dates: start: 20070216

REACTIONS (1)
  - ISCHAEMIC STROKE [None]
